FAERS Safety Report 6661642-6 (Version None)
Quarter: 2010Q1

REPORT INFORMATION
  Report Type: 
  Country: None (occurrence: None)
  Receive Date: 20100331
  Receipt Date: 20090311
  Transmission Date: 20100710
  Serious: Yes (Other)
  Sender: FDA-Public Use
  Company Number: US-BRISTOL-MYERS SQUIBB COMPANY-14539571

PATIENT
  Age: 69 Year
  Sex: Male
  Weight: 113 kg

DRUGS (14)
  1. ERBITUX [Suspect]
     Indication: COLON CANCER
     Dosage: THERAPY DATES-03FEB09, 10MAR09. SCHEDULED: EVERY 2 WEEKS FOR 6 CYCLES
     Route: 042
     Dates: start: 20090203, end: 20090203
  2. ERBITUX [Suspect]
     Indication: METASTASES TO LIVER
     Dosage: THERAPY DATES-03FEB09, 10MAR09. SCHEDULED: EVERY 2 WEEKS FOR 6 CYCLES
     Route: 042
     Dates: start: 20090203, end: 20090203
  3. IRINOTECAN HYDROCHLORIDE [Suspect]
     Dosage: 1 DOSE. SCHEDULED: EVERY 2 WEEKS FOR 6 CYCLES
     Dates: start: 20090203
  4. VERAPAMIL [Concomitant]
  5. ACTOS [Concomitant]
  6. ZOCOR [Concomitant]
  7. DIOVAN HCT [Concomitant]
     Dosage: 1 DF=80/125MG.
  8. FUROSEMIDE [Concomitant]
     Dates: start: 20080415
  9. SPIRONOLACTONE [Concomitant]
     Dates: start: 20080415
  10. MEGESTROL [Concomitant]
     Dates: start: 20080429
  11. BENTYL [Concomitant]
     Dosage: BID AS NECESSARY
     Dates: start: 20080528
  12. BENADRYL [Concomitant]
     Route: 042
  13. DEXAMETHASONE [Concomitant]
     Indication: PREMEDICATION
     Route: 042
  14. ALBUTEROL SULATE [Concomitant]
     Indication: PREMEDICATION
     Dosage: DF=PUFFS

REACTIONS (3)
  - ABDOMINAL PAIN [None]
  - BACK PAIN [None]
  - DEHYDRATION [None]
